FAERS Safety Report 23308692 (Version 1)
Quarter: 2023Q4

REPORT INFORMATION
  Report Type: Spontaneous
  Country: US (occurrence: None)
  Receive Date: 20231217
  Receipt Date: 20231217
  Transmission Date: 20240110
  Serious: No
  Sender: FDA-Public Use
  Company Number: None

PATIENT
  Age: 47 Year
  Sex: Female
  Weight: 84.6 kg

DRUGS (1)
  1. BUSPIRONE [Suspect]
     Active Substance: BUSPIRONE HYDROCHLORIDE
     Dosage: FREQUENCY : TWICE A DAY;?
     Dates: start: 20231215, end: 20231217

REACTIONS (4)
  - Heart rate increased [None]
  - Hypoaesthesia [None]
  - Abdominal discomfort [None]
  - Hypervigilance [None]

NARRATIVE: CASE EVENT DATE: 20231215
